FAERS Safety Report 4608321-4 (Version None)
Quarter: 2005Q1

REPORT INFORMATION
  Report Type: 
  Country: None (occurrence: None)
  Receive Date: 20050228
  Receipt Date: 20041214
  Transmission Date: 20050727
  Serious: Yes (Hospitalization)
  Sender: FDA-Public Use
  Company Number: FABR-10921

PATIENT
  Age: 45 Year
  Sex: Male
  Weight: 68.2 kg

DRUGS (10)
  1. FABRAZYME [Suspect]
     Indication: FABRY'S DISEASE
     Dosage: 1 MG/KG Q2WKS  IV
     Route: 042
     Dates: start: 20010521
  2. PRODAFALGAN [Concomitant]
  3. SOLU-CORTEF [Concomitant]
  4. TACROLIMUS [Concomitant]
  5. MYCOPHENOLATE MOFETIL [Concomitant]
  6. ACENOCOUMAROL [Concomitant]
  7. ASA/PHENYTOIN [Concomitant]
  8. PREDNISOLONE [Concomitant]
  9. PIRACETAM [Concomitant]
  10. FOLIC ACID [Concomitant]

REACTIONS (1)
  - VERTIGO [None]
